FAERS Safety Report 6958990-9 (Version None)
Quarter: 2010Q3

REPORT INFORMATION
  Report Type: 
  Country: None (occurrence: None)
  Receive Date: 20100831
  Receipt Date: 20100820
  Transmission Date: 20110219
  Serious: Yes (Other)
  Sender: FDA-Public Use
  Company Number: JP-PFIZER INC-2010105453

PATIENT

DRUGS (3)
  1. CHAMPIX [Suspect]
     Dosage: UNK
  2. DEPAS [Suspect]
     Dosage: UNK
     Route: 048
  3. ALCOHOL [Suspect]
     Dosage: UNK

REACTIONS (2)
  - CONVERSION DISORDER [None]
  - MEMORY IMPAIRMENT [None]
